FAERS Safety Report 18886360 (Version 1)
Quarter: 2021Q1

REPORT INFORMATION
  Report Type: Spontaneous
  Country: CA (occurrence: CA)
  Receive Date: 20210212
  Receipt Date: 20210212
  Transmission Date: 20210420
  Serious: Yes (Death)
  Sender: FDA-Public Use
  Company Number: CA-PFIZER INC-2019558439

PATIENT
  Age: 74 Year
  Sex: Male
  Weight: 85 kg

DRUGS (10)
  1. BOSULIF [Suspect]
     Active Substance: BOSUTINIB MONOHYDRATE
     Dosage: 200 MG, 1X/DAY (TAKING TWO TABLETS)
  2. PROCHLORPERAZINE MALEATE KENT PHARM [Concomitant]
     Indication: VOMITING
  3. OMNARIS [Concomitant]
     Active Substance: CICLESONIDE
     Dosage: UNK
  4. RILUZOLE. [Concomitant]
     Active Substance: RILUZOLE
     Dosage: UNK
  5. BOSULIF [Suspect]
     Active Substance: BOSUTINIB MONOHYDRATE
     Dosage: 300 MG, 1X/DAY
  6. BOSULIF [Suspect]
     Active Substance: BOSUTINIB MONOHYDRATE
     Dosage: 100 MG, 2X/DAY
     Route: 048
  7. BOSULIF [Suspect]
     Active Substance: BOSUTINIB MONOHYDRATE
     Dosage: 100 MG, ONCE DAILY (1TAB/7DAYS, THEN 2TABS/7DAYS, THEN 3TABS/7DAYS, THEN 4TABS/7DAYS)
     Route: 048
     Dates: start: 20191128
  8. BOSULIF [Suspect]
     Active Substance: BOSUTINIB MONOHYDRATE
     Dosage: 100 MG, 1X/DAY (TAKING 4 TABLETS)
     Route: 048
     Dates: start: 20200708
  9. BOSULIF [Suspect]
     Active Substance: BOSUTINIB MONOHYDRATE
     Dosage: 400 MG, ONCE DAILY WITH FOOD, TABS SHOULD NOT BE CRUSHED OR CUT
     Route: 048
     Dates: start: 202001
  10. PROCHLORPERAZINE MALEATE KENT PHARM [Concomitant]
     Indication: NAUSEA
     Dosage: 1 DF, AS NEEDED (TAKE 1 TABLET EVERY 4 HOURS AS REQUIRED)
     Route: 048

REACTIONS (5)
  - Blood count abnormal [Unknown]
  - Weight decreased [Unknown]
  - Diarrhoea [Unknown]
  - Death [Fatal]
  - Pharyngeal disorder [Unknown]
